FAERS Safety Report 6097300-9 (Version None)
Quarter: 2009Q1

REPORT INFORMATION
  Report Type: 
  Country: None (occurrence: None)
  Receive Date: 20090227
  Receipt Date: 20090226
  Transmission Date: 20090719
  Serious: Yes (Death, Hospitalization, Congenital Anomaly, Other)
  Sender: FDA-Public Use
  Company Number: DE-BRISTOL-MYERS SQUIBB COMPANY-14290209

PATIENT
  Weight: 1 kg

DRUGS (6)
  1. SUSTIVA [Suspect]
     Dosage: 1 DF = 1 X 6000
     Route: 064
     Dates: end: 20060925
  2. INVIRASE [Suspect]
     Route: 064
     Dates: start: 20060925, end: 20070201
  3. COMBIVIR [Suspect]
     Route: 064
     Dates: end: 20070201
  4. NORVIR [Suspect]
     Route: 064
     Dates: start: 20060925, end: 20070201
  5. VALCYTE [Suspect]
     Route: 064
     Dates: end: 20060925
  6. CO-TRIMOXAZOLE [Suspect]
     Route: 064
     Dates: end: 20060925

REACTIONS (11)
  - ANAL ATRESIA [None]
  - ANAL STENOSIS [None]
  - BACTERIAL SEPSIS [None]
  - CONGENITAL ANOMALY [None]
  - CONGENITAL CENTRAL NERVOUS SYSTEM ANOMALY [None]
  - CONGENITAL FOOT MALFORMATION [None]
  - CONGENITAL MUSCULOSKELETAL ANOMALY [None]
  - DEXTROCARDIA [None]
  - SOLITARY KIDNEY [None]
  - SPINE MALFORMATION [None]
  - SYSTEMIC INFLAMMATORY RESPONSE SYNDROME [None]
